FAERS Safety Report 25203958 (Version 1)
Quarter: 2025Q2

REPORT INFORMATION
  Report Type: Spontaneous
  Country: US (occurrence: US)
  Receive Date: 20250416
  Receipt Date: 20250416
  Transmission Date: 20250716
  Serious: Yes (Other)
  Sender: AMGEN
  Company Number: US-AMGEN-USASP2025069737

PATIENT

DRUGS (6)
  1. BEVACIZUMAB [Suspect]
     Active Substance: BEVACIZUMAB
     Indication: Colorectal cancer metastatic
     Dosage: 5 MILLIGRAM/KILOGRAM, Q2WK (IN 28-DAY CYCLES)
     Route: 065
  2. TELISOTUZUMAB ADIZUTECAN [Suspect]
     Active Substance: TELISOTUZUMAB ADIZUTECAN
     Indication: Colorectal cancer metastatic
     Route: 065
  3. TELISOTUZUMAB ADIZUTECAN [Suspect]
     Active Substance: TELISOTUZUMAB ADIZUTECAN
     Route: 065
  4. FLUOROURACIL [Suspect]
     Active Substance: FLUOROURACIL
     Indication: Colorectal cancer metastatic
     Dosage: 2400 MILLIGRAM/SQ. METER, Q2WK (IN 28-DAY CYCLES)
     Route: 065
  5. LEUCOVORIN [Suspect]
     Active Substance: LEUCOVORIN\LEUCOVORIN CALCIUM
     Indication: Colorectal cancer metastatic
     Dosage: 200 MILLIGRAM/SQ. METER, Q2WK (IN 28-DAY CYCLES)
     Route: 065
  6. IRINOTECAN [Suspect]
     Active Substance: IRINOTECAN
     Indication: Colorectal cancer metastatic
     Dosage: 180 MILLIGRAM/SQ. METER, Q2WK
     Route: 065

REACTIONS (2)
  - Colorectal cancer metastatic [Unknown]
  - Toxicity to various agents [Unknown]
